FAERS Safety Report 7458392-5 (Version None)
Quarter: 2011Q2

REPORT INFORMATION
  Report Type: 
  Country: None (occurrence: None)
  Receive Date: 20110504
  Receipt Date: 20110427
  Transmission Date: 20111010
  Serious: Yes (Disabling)
  Sender: FDA-Public Use
  Company Number: A0924758A

PATIENT
  Age: 64 Year
  Sex: Female

DRUGS (3)
  1. REQUIP [Suspect]
     Indication: RESTLESS LEGS SYNDROME
     Dosage: .25MG VARIABLE DOSE
     Route: 048
     Dates: start: 20100901
  2. BARACLUDE [Concomitant]
  3. MIRALAX [Concomitant]

REACTIONS (5)
  - TARSAL TUNNEL SYNDROME [None]
  - TENDON RUPTURE [None]
  - LIGAMENT RUPTURE [None]
  - TENDON DISORDER [None]
  - CARPAL TUNNEL SYNDROME [None]
